FAERS Safety Report 20574190 (Version 1)
Quarter: 2022Q1

REPORT INFORMATION
  Report Type: Spontaneous
  Country: CN (occurrence: CN)
  Receive Date: 20220309
  Receipt Date: 20220309
  Transmission Date: 20220423
  Serious: Yes (Other)
  Sender: FDA-Public Use
  Company Number: CN-PFIZER INC-202200342732

PATIENT
  Age: 53 Year
  Sex: Male
  Weight: 74 kg

DRUGS (10)
  1. CYTARABINE [Suspect]
     Active Substance: CYTARABINE
     Indication: Chemotherapy
     Dosage: 0.2 G, 1X/DAY
     Route: 041
     Dates: start: 20220207, end: 20220213
  2. CYTARABINE [Suspect]
     Active Substance: CYTARABINE
     Indication: Neoplasm malignant
  3. CYTARABINE [Suspect]
     Active Substance: CYTARABINE
     Indication: Nasopharyngeal tumour
  4. DAUNORUBICIN HYDROCHLORIDE [Suspect]
     Active Substance: DAUNORUBICIN HYDROCHLORIDE
     Indication: Chemotherapy
     Dosage: 60 MG, 1X/DAY
     Route: 041
     Dates: start: 20220207, end: 20220209
  5. DAUNORUBICIN HYDROCHLORIDE [Suspect]
     Active Substance: DAUNORUBICIN HYDROCHLORIDE
     Indication: Neoplasm malignant
  6. DAUNORUBICIN HYDROCHLORIDE [Suspect]
     Active Substance: DAUNORUBICIN HYDROCHLORIDE
     Indication: Nasopharyngeal tumour
  7. DEXTROSE [Concomitant]
     Active Substance: DEXTROSE
     Indication: Chemotherapy
     Dosage: 500 ML, 1X/DAY
     Route: 041
     Dates: start: 20220207, end: 20220213
  8. DEXTROSE [Concomitant]
     Active Substance: DEXTROSE
     Indication: Neoplasm malignant
  9. SODIUM CHLORIDE [Concomitant]
     Active Substance: SODIUM CHLORIDE
     Indication: Chemotherapy
     Dosage: 100 ML, 1X/DAY
     Route: 041
     Dates: start: 20220207, end: 20220209
  10. SODIUM CHLORIDE [Concomitant]
     Active Substance: SODIUM CHLORIDE
     Indication: Neoplasm malignant

REACTIONS (4)
  - Nausea [Recovering/Resolving]
  - Vomiting [Recovering/Resolving]
  - Feeding disorder [Recovering/Resolving]
  - Off label use [Unknown]

NARRATIVE: CASE EVENT DATE: 20220207
